FAERS Safety Report 4482015-0 (Version None)
Quarter: 2004Q4

REPORT INFORMATION
  Report Type: 
  Country: None (occurrence: None)
  Receive Date: 20041020
  Receipt Date: 20041020
  Transmission Date: 20050328
  Serious: Yes (Hospitalization)
  Sender: FDA-Public Use
  Company Number: None

PATIENT
  Age: 57 Year
  Sex: Female

DRUGS (10)
  1. DOCETAXEL [Suspect]
     Indication: BREAST CANCER
     Dosage: 180 MG ONCE INTRAVENOUS
     Route: 042
     Dates: start: 20040126, end: 20040126
  2. LORAZEPAM [Concomitant]
  3. NEULASTA HYDROCHLOROTHIAZIDE [Concomitant]
  4. VENLAFAXINE HCL [Concomitant]
  5. BUPROPION HCL [Concomitant]
  6. MULTIPLE VITAMIN [Concomitant]
  7. POTASSIUM SUPPLEMENT [Concomitant]
  8. CALCIUM [Concomitant]
  9. HYPERTENSION MEDICAITON [Concomitant]
  10. ASPIRIN [Concomitant]

REACTIONS (4)
  - DYSPNOEA [None]
  - LUNG INFILTRATION [None]
  - LUNG INJURY [None]
  - MUCOSAL INFLAMMATION [None]
